FAERS Safety Report 7554636-X (Version None)
Quarter: 2011Q2

REPORT INFORMATION
  Report Type: 
  Country: None (occurrence: None)
  Receive Date: 20110610
  Receipt Date: 20110525
  Transmission Date: 20111010
  Serious: Yes (Hospitalization, Other)
  Sender: FDA-Public Use
  Company Number: 2011MA005889

PATIENT
  Age: 13 Year
  Sex: Female

DRUGS (8)
  1. NIFEDIPINE [Suspect]
     Indication: HYPERTENSION
  2. FAMOTIDINE [Concomitant]
  3. AMITRIPTYLINE HCL [Concomitant]
  4. AMPHOTERICIN B [Concomitant]
  5. AMOXICILLIN [Concomitant]
  6. PHENOBARBITAL [Concomitant]
  7. ACEBUTOLOL [Concomitant]
  8. OMEPRAZOLE [Concomitant]

REACTIONS (30)
  - ABDOMINAL PAIN UPPER [None]
  - BLOOD UREA INCREASED [None]
  - MOTOR DYSFUNCTION [None]
  - BRAIN OEDEMA [None]
  - SPEECH DISORDER [None]
  - PORPHYRIA ACUTE [None]
  - PERIPHERAL MOTOR NEUROPATHY [None]
  - AXONAL NEUROPATHY [None]
  - WEIGHT DECREASED [None]
  - ALANINE AMINOTRANSFERASE INCREASED [None]
  - DYSPHAGIA [None]
  - AMYOTROPHY [None]
  - DYSPHONIA [None]
  - GRAND MAL CONVULSION [None]
  - CACHEXIA [None]
  - HYPONATRAEMIA [None]
  - GASTRITIS [None]
  - CHROMATURIA [None]
  - ASPARTATE AMINOTRANSFERASE INCREASED [None]
  - VOMITING [None]
  - DEPRESSION [None]
  - RESPIRATORY DISORDER [None]
  - IRRITABILITY [None]
  - GENERAL PHYSICAL HEALTH DETERIORATION [None]
  - PARALYSIS FLACCID [None]
  - CHEST EXPANSION DECREASED [None]
  - AREFLEXIA [None]
  - QUADRIPLEGIA [None]
  - VIITH NERVE PARALYSIS [None]
  - CHOKING [None]
